FAERS Safety Report 4986788-X (Version None)
Quarter: 2006Q2

REPORT INFORMATION
  Report Type: 
  Country: None (occurrence: None)
  Receive Date: 20060428
  Receipt Date: 20051012
  Transmission Date: 20061013
  Serious: Yes (Hospitalization, Disabling)
  Sender: FDA-Public Use
  Company Number: US-MERCK-0510USA06907

PATIENT
  Age: 53 Year
  Sex: Male
  Weight: 90 kg

DRUGS (16)
  1. VIOXX [Suspect]
     Indication: ARTHRITIS
     Route: 048
     Dates: start: 20000517, end: 20020827
  2. ASPIRIN [Concomitant]
     Indication: ANALGESIC EFFECT
     Route: 048
  3. COREG [Concomitant]
     Route: 048
  4. NORVASC [Concomitant]
     Route: 048
  5. LASIX [Concomitant]
     Route: 048
  6. LASIX [Concomitant]
     Route: 048
  7. K-DUR 10 [Concomitant]
     Route: 048
  8. K-DUR 10 [Concomitant]
     Route: 048
  9. CORDARONE [Concomitant]
     Route: 048
  10. ZESTRIL [Concomitant]
     Route: 048
  11. ZOCOR [Concomitant]
     Route: 048
  12. DARVOCET [Concomitant]
     Route: 048
  13. CELEBREX [Concomitant]
     Route: 048
  14. DIOVAN [Concomitant]
     Route: 048
  15. LIPITOR [Concomitant]
     Route: 048
  16. NITROGLYCERIN [Concomitant]
     Route: 060

REACTIONS (9)
  - ANGINA UNSTABLE [None]
  - ATRIAL FIBRILLATION [None]
  - CARDIAC FAILURE CONGESTIVE [None]
  - CORONARY ARTERY DISEASE [None]
  - EJECTION FRACTION ABNORMAL [None]
  - HYPERLIPIDAEMIA [None]
  - HYPERTENSION [None]
  - ISCHAEMIC CARDIOMYOPATHY [None]
  - MYOCARDIAL INFARCTION [None]
